FAERS Safety Report 10711035 (Version 1)
Quarter: 2015Q1

REPORT INFORMATION
  Report Type: Spontaneous
  Country: GB (occurrence: GB)
  Receive Date: 20150114
  Receipt Date: 20150114
  Transmission Date: 20150721
  Serious: Yes (Other)
  Sender: FDA-Public Use
  Company Number: GB-TEVA-532860ISR

PATIENT
  Age: 39 Year
  Sex: Female
  Weight: 87.08 kg

DRUGS (21)
  1. FEXOFENADINE [Concomitant]
     Active Substance: FEXOFENADINE\FEXOFENADINE HYDROCHLORIDE
  2. METOCLOPRAMIDE. [Concomitant]
     Active Substance: METOCLOPRAMIDE
  3. AMITRIPTYLINE [Suspect]
     Active Substance: AMITRIPTYLINE
     Indication: RESTLESS LEGS SYNDROME
     Route: 048
     Dates: start: 20140623, end: 20140923
  4. GABAPENTIN. [Suspect]
     Active Substance: GABAPENTIN
     Indication: RESTLESS LEGS SYNDROME
     Route: 048
     Dates: start: 201410, end: 201410
  5. PREGABALIN. [Suspect]
     Active Substance: PREGABALIN
     Indication: PAIN
     Route: 048
     Dates: start: 20141115, end: 20141215
  6. FLIXONASE [Concomitant]
     Active Substance: FLUTICASONE PROPIONATE
  7. MONTELUKAST SODIUM. [Concomitant]
     Active Substance: MONTELUKAST SODIUM
  8. PARACETAMOL [Concomitant]
     Active Substance: ACETAMINOPHEN
  9. SALBUTAMOL [Concomitant]
     Active Substance: ALBUTEROL
  10. TIOTROPIUM BROMIDE [Concomitant]
     Active Substance: TIOTROPIUM BROMIDE
  11. CALCIFEROL [Concomitant]
     Active Substance: ERGOCALCIFEROL
  12. FLUTIFORM [Concomitant]
     Active Substance: FLUTICASONE PROPIONATE\FORMOTEROL FUMARATE
  13. FOLIC ACID. [Concomitant]
     Active Substance: FOLIC ACID
  14. BUSCOPAN [Concomitant]
     Active Substance: BUTYLSCOPOLAMINE BROMIDE
  15. DIHYDROCODEINE [Concomitant]
     Active Substance: DIHYDROCODEINE
  16. RANITIDINE [Concomitant]
     Active Substance: RANITIDINE\RANITIDINE HYDROCHLORIDE
  17. HYPROMELLOSE [Concomitant]
     Active Substance: HYPROMELLOSES
  18. OLOPATADINE [Concomitant]
     Active Substance: OLOPATADINE
  19. OMEPRAZOLE. [Concomitant]
     Active Substance: OMEPRAZOLE
  20. PREDNISOLONE. [Concomitant]
     Active Substance: PREDNISOLONE
  21. SODIUM CHLORIDE SOLUTION 0.9% [Concomitant]

REACTIONS (4)
  - Dizziness [Unknown]
  - Hyperhidrosis [Recovered/Resolved with Sequelae]
  - Dizziness [Recovered/Resolved]
  - Vision blurred [Recovering/Resolving]

NARRATIVE: CASE EVENT DATE: 20140630
